FAERS Safety Report 4519729-X (Version None)
Quarter: 2004Q4

REPORT INFORMATION
  Report Type: 
  Country: None (occurrence: None)
  Receive Date: 20041203
  Receipt Date: 20041203
  Transmission Date: 20050328
  Serious: No
  Sender: FDA-Public Use
  Company Number: None

PATIENT
  Age: 75 Year
  Sex: Female
  Weight: 40 kg

DRUGS (1)
  1. METOCLOPRAMIDE [Suspect]
     Dosage: 10 MG   EVERY 12 HOUR  INTRAVENOU
     Route: 042
     Dates: start: 20041123, end: 20041126

REACTIONS (2)
  - DIARRHOEA [None]
  - MUSCLE CRAMP [None]
